FAERS Safety Report 6028836-4 (Version None)
Quarter: 2008Q4

REPORT INFORMATION
  Report Type: 
  Country: None (occurrence: None)
  Receive Date: 20081222
  Receipt Date: 20081023
  Transmission Date: 20090506
  Serious: No
  Sender: FDA-Public Use
  Company Number: ALL1-2008-03094

PATIENT
  Age: 15 Year
  Sex: Male

DRUGS (3)
  1. VYVANSE [Suspect]
     Dosage: 70 MG, 1X/DAY:QD, ORAL
     Route: 048
     Dates: start: 20080728
  2. GABAPENTIN [Concomitant]
  3. BUSPIRONE HCL [Concomitant]

REACTIONS (2)
  - EPISTAXIS [None]
  - OFF LABEL USE [None]
